FAERS Safety Report 4674171-6 (Version None)
Quarter: 2005Q2

REPORT INFORMATION
  Report Type: 
  Country: None (occurrence: None)
  Receive Date: 20050524
  Receipt Date: 20050524
  Transmission Date: 20051028
  Serious: No
  Sender: FDA-Public Use
  Company Number: None

PATIENT
  Sex: Male
  Weight: 92.8 kg

DRUGS (16)
  1. AMIFOSTINE [Suspect]
     Dosage: 740 MG/M2 ON DAY -2 FOR 5 MINUTES
     Dates: start: 20050508
  2. MELPHALAN [Suspect]
     Dosage: GIVEN AS A SINGLE INFUSION FOR 5 MINUTES AT 740 MG/M2 ADMINISTERED 15 TO 30 MINUTES AFTER THE AMIFOS
  3. ALLEGRA [Concomitant]
  4. AMITRIPTYLINE [Concomitant]
  5. ANUSOL HC [Concomitant]
  6. COLACE [Concomitant]
  7. COMPZINE [Concomitant]
  8. FLONASE [Concomitant]
  9. DYHYDROCHLOROTHIAZIDE [Concomitant]
  10. ISOPTIN SR [Concomitant]
  11. LEVOTHROID [Concomitant]
  12. LIDODERM [Concomitant]
  13. OXYCONTIN [Concomitant]
  14. OXYCODONE HCL [Concomitant]
  15. POTASSIUM CHLORIDE [Concomitant]
  16. TRAZODONE [Concomitant]

REACTIONS (7)
  - BUNDLE BRANCH BLOCK LEFT [None]
  - CARDIAC AMYLOIDOSIS [None]
  - CHEST PAIN [None]
  - DIZZINESS [None]
  - ELECTROCARDIOGRAM ABNORMAL [None]
  - MYOCARDIAL INFARCTION [None]
  - ORTHOSTATIC HYPOTENSION [None]
